FAERS Safety Report 15845833 (Version 1)
Quarter: 2019Q1

REPORT INFORMATION
  Report Type: Other
  Country: JP (occurrence: JP)
  Receive Date: 20190120
  Receipt Date: 20190120
  Transmission Date: 20190417
  Serious: Yes (Other)
  Sender: FDA-Public Use
  Company Number: JP-DEXPHARM-20190037

PATIENT
  Age: 70 Year
  Sex: Female

DRUGS (3)
  1. BERBESOLONE [Concomitant]
     Route: 061
  2. CRAVIT [Concomitant]
     Active Substance: LEVOFLOXACIN
     Dosage: 4 TIMES A DAY
     Route: 061
  3. DICLOFENAC [Suspect]
     Active Substance: DICLOFENAC
     Route: 061

REACTIONS (2)
  - Ulcerative keratitis [Recovered/Resolved]
  - Dry eye [Unknown]
